FAERS Safety Report 7441959-8 (Version None)
Quarter: 2011Q2

REPORT INFORMATION
  Report Type: 
  Country: None (occurrence: None)
  Receive Date: 20110428
  Receipt Date: 20100825
  Transmission Date: 20111010
  Serious: No
  Sender: FDA-Public Use
  Company Number: US-ASTRAZENECA-2001UW15380

PATIENT
  Age: 46 Year
  Sex: Female
  Weight: 62.6 kg

DRUGS (8)
  1. ZOMIG [Suspect]
     Route: 045
     Dates: start: 20000101
  2. ORAL CONTRACEPTIVE [Concomitant]
     Route: 048
  3. INDERAL [Concomitant]
  4. MAGNESIUM [Concomitant]
  5. VITAMINS [Concomitant]
  6. BENACAR [Concomitant]
  7. ZOMIG [Suspect]
     Indication: MIGRAINE
     Route: 048
     Dates: start: 20000101
  8. FEVERFEW [Concomitant]

REACTIONS (4)
  - HYPERVENTILATION [None]
  - HEADACHE [None]
  - AMNESIA [None]
  - INCORRECT DOSE ADMINISTERED [None]
